FAERS Safety Report 8905260 (Version 24)
Quarter: 2016Q4

REPORT INFORMATION
  Report Type: Report from Study
  Country: CA (occurrence: CA)
  Receive Date: 20121112
  Receipt Date: 20161220
  Transmission Date: 20170207
  Serious: Yes (Hospitalization, Other)
  Sender: FDA-Public Use
  Company Number: PHHY2012CA103229

PATIENT
  Age: 74 Year
  Sex: Female

DRUGS (4)
  1. SANDOSTATIN LAR DEPOT [Suspect]
     Active Substance: OCTREOTIDE ACETATE
     Indication: PANCREATIC NEUROENDOCRINE TUMOUR METASTATIC
     Dosage: 30 MG, ONCE A MONTH
     Route: 030
     Dates: start: 20121012
  2. SANDOSTATIN [Suspect]
     Active Substance: OCTREOTIDE ACETATE
     Indication: PANCREATIC NEUROENDOCRINE TUMOUR METASTATIC
     Dosage: UNK UG, TID FOR ONE WEEK
     Route: 058
     Dates: start: 20121005, end: 20121012
  3. SUTENT [Suspect]
     Active Substance: SUNITINIB MALATE
     Indication: PRODUCT USED FOR UNKNOWN INDICATION
     Dosage: 12.5 MG, UNK
     Route: 065
  4. SANDOSTATIN LAR DEPOT [Suspect]
     Active Substance: OCTREOTIDE ACETATE
     Dosage: 30 MG, EVERY 4 WEEKS
     Route: 030
     Dates: start: 20141113

REACTIONS (22)
  - Anaemia [Unknown]
  - Blood pressure diastolic decreased [Unknown]
  - Fall [Unknown]
  - Pain in extremity [Unknown]
  - Product quality issue [Unknown]
  - Fatigue [Unknown]
  - Diabetes mellitus [Unknown]
  - Urinary tract infection [Unknown]
  - Gait disturbance [Unknown]
  - Hypoglycaemia [Unknown]
  - Nasopharyngitis [Unknown]
  - Abasia [Unknown]
  - Pallor [Unknown]
  - Injection site pain [Recovered/Resolved]
  - Hypotension [Unknown]
  - Blood pressure systolic increased [Unknown]
  - Musculoskeletal pain [Recovered/Resolved]
  - Needle issue [Unknown]
  - Nausea [Unknown]
  - Dizziness [Unknown]
  - Back pain [Unknown]
  - Rhinorrhoea [Unknown]

NARRATIVE: CASE EVENT DATE: 20121105
